FAERS Safety Report 8827552 (Version 1)
Quarter: 2012Q4

REPORT INFORMATION
  Report Type: 
  Country: US (occurrence: US)
  Receive Date: 20121008
  Receipt Date: 20121008
  Transmission Date: 20130627
  Serious: Yes (Hospitalization)
  Sender: FDA-Public Use
  Company Number: US-BAYER-2012-102159

PATIENT
  Age: 15 Year
  Sex: Female

DRUGS (6)
  1. YAZ [Suspect]
  2. YASMIN [Suspect]
  3. OCELLA [Suspect]
  4. METFORMIN HCL [Concomitant]
     Dosage: 1 mg, UNK, daily
     Route: 048
  5. SYNTHROID [Concomitant]
     Dosage: 75 ?g, UNK
     Route: 048
  6. VENTOLIN HFA [Concomitant]
     Dosage: 90 ?g, UNK
     Route: 048

REACTIONS (2)
  - Deep vein thrombosis [None]
  - Pelvic venous thrombosis [None]
